FAERS Safety Report 4970923-3 (Version None)
Quarter: 2006Q2

REPORT INFORMATION
  Report Type: 
  Country: None (occurrence: None)
  Receive Date: 20060411
  Receipt Date: 20060411
  Transmission Date: 20061013
  Serious: Yes (Other)
  Sender: FDA-Public Use
  Company Number: None

PATIENT
  Sex: Female
  Weight: 81.6475 kg

DRUGS (1)
  1. LIPITOR [Suspect]
     Indication: BLOOD CHOLESTEROL INCREASED
     Dosage: ONE PILL   DAILY  PO
     Route: 048
     Dates: start: 20050601, end: 20060301

REACTIONS (10)
  - APHASIA [None]
  - ARTHRALGIA [None]
  - ASTHENIA [None]
  - FLUSHING [None]
  - HYPOAESTHESIA [None]
  - MENOPAUSAL SYMPTOMS [None]
  - NECK PAIN [None]
  - NEUROPATHY [None]
  - TENDONITIS [None]
  - TUNNEL VISION [None]
